FAERS Safety Report 9690853 (Version 2)
Quarter: 2014Q3

REPORT INFORMATION
  Report Type: Spontaneous
  Country: JP (occurrence: JP)
  Receive Date: 20131115
  Receipt Date: 20140729
  Transmission Date: 20150326
  Serious: Yes (Hospitalization)
  Sender: FDA-Public Use
  Company Number: JP-SA-2013SA117721

PATIENT
  Age: 78 Year
  Sex: Male

DRUGS (6)
  1. THERAPEUTIC RADIOPHARMACEUTICALS [Concomitant]
     Active Substance: RADIATION THERAPY
     Indication: OESOPHAGEAL CARCINOMA
     Dates: start: 20130628
  2. SOLUTIONS FOR PARENTERAL NUTRITION [Concomitant]
     Active Substance: AMINO ACIDS\DEXTROSE\ELECTROLYTES NOS
     Dates: start: 201306
  3. FLUOROURACIL. [Suspect]
     Active Substance: FLUOROURACIL
     Indication: OESOPHAGEAL CARCINOMA
     Route: 042
     Dates: start: 201306
  4. MULTIVITAMINS [Suspect]
     Active Substance: VITAMINS
     Indication: OESOPHAGEAL CARCINOMA
     Dosage: DRIP INFUSION BY INTRAVENOUS HYPERALIMENTATION
     Route: 041
     Dates: start: 20130711
  5. TRACE ELEMENTS [Suspect]
     Active Substance: UNSPECIFIED INGREDIENT
     Indication: OESOPHAGEAL CARCINOMA
     Dosage: DRIP INFUSION BY INTRAVENOUS HYPERALIMENTATION
     Route: 041
     Dates: start: 20130711
  6. TAXOTERE [Suspect]
     Active Substance: DOCETAXEL
     Indication: OESOPHAGEAL CARCINOMA
     Route: 042
     Dates: start: 201306

REACTIONS (12)
  - Electrocardiogram ST segment elevation [Recovering/Resolving]
  - Blood pressure systolic decreased [Recovering/Resolving]
  - Chest pain [Recovering/Resolving]
  - Acute myocardial infarction [Recovering/Resolving]
  - Drug eruption [Recovering/Resolving]
  - Electrocardiogram ST segment depression [Recovering/Resolving]
  - Depressed level of consciousness [Recovered/Resolved]
  - Bundle branch block right [Recovering/Resolving]
  - Pruritus [Recovering/Resolving]
  - Kounis syndrome [Recovering/Resolving]
  - Urticaria [Recovering/Resolving]
  - Shock [Recovering/Resolving]

NARRATIVE: CASE EVENT DATE: 201306
